FAERS Safety Report 6772001-X (Version None)
Quarter: 2010Q2

REPORT INFORMATION
  Report Type: 
  Country: None (occurrence: None)
  Receive Date: 20100616
  Receipt Date: 20090716
  Transmission Date: 20101027
  Serious: No
  Sender: FDA-Public Use
  Company Number: US-ASTRAZENECA-2009UW20151

PATIENT
  Sex: Female
  Weight: 73.9 kg

DRUGS (4)
  1. RHINOCORT [Suspect]
     Indication: RHINITIS
     Route: 045
     Dates: start: 20090712, end: 20090713
  2. LEVOTHYROXINE SODIUM [Concomitant]
  3. LISINOPRIL [Concomitant]
  4. SINGULAIR [Concomitant]

REACTIONS (4)
  - DIZZINESS [None]
  - HEADACHE [None]
  - NASAL DISCOMFORT [None]
  - NAUSEA [None]
